FAERS Safety Report 6173631-9 (Version None)
Quarter: 2009Q2

REPORT INFORMATION
  Report Type: 
  Country: None (occurrence: None)
  Receive Date: 20090430
  Receipt Date: 20090422
  Transmission Date: 20091009
  Serious: Yes (Other)
  Sender: FDA-Public Use
  Company Number: JP-MERCK-0904USA04092

PATIENT
  Age: 70 Year
  Sex: Female

DRUGS (3)
  1. PEPCID [Suspect]
     Indication: GASTRITIS
     Route: 048
     Dates: start: 20081226, end: 20090417
  2. SELBEX [Concomitant]
     Route: 048
     Dates: start: 20081114, end: 20090417
  3. GASMOTIN [Concomitant]
     Route: 048
     Dates: start: 20081226, end: 20090417

REACTIONS (1)
  - LIVER DISORDER [None]
